FAERS Safety Report 4342273-X (Version None)
Quarter: 2004Q2

REPORT INFORMATION
  Report Type: 
  Country: None (occurrence: None)
  Receive Date: 20040415
  Receipt Date: 20040402
  Transmission Date: 20050107
  Serious: Yes (Hospitalization)
  Sender: FDA-Public Use
  Company Number: ZONI001380

PATIENT
  Age: 22 Year
  Sex: Male

DRUGS (3)
  1. ZONEGRAN (ZONISAMIDE) [Suspect]
     Indication: CONVULSION
     Dosage: 600 MG DAILY
     Dates: start: 20030701
  2. TOPAMAX [Concomitant]
  3. CEREBYX [Concomitant]

REACTIONS (5)
  - BLOOD CULTURE POSITIVE [None]
  - CONVULSION [None]
  - LABORATORY TEST INTERFERENCE [None]
  - LUNG INFILTRATION [None]
  - STAPHYLOCOCCAL INFECTION [None]
